FAERS Safety Report 18078542 (Version 8)
Quarter: 2021Q1

REPORT INFORMATION
  Report Type: Other
  Country: DE (occurrence: DE)
  Receive Date: 20200728
  Receipt Date: 20210216
  Transmission Date: 20210419
  Serious: No
  Sender: FDA-Public Use
  Company Number: DE-ROCHE-2135467

PATIENT
  Age: 61 Year
  Sex: Male

DRUGS (13)
  1. TAMSULOSIN [Concomitant]
     Active Substance: TAMSULOSIN
  2. OCREVUS [Suspect]
     Active Substance: OCRELIZUMAB
     Route: 042
     Dates: start: 20190522
  3. ATORVASTATIN [Concomitant]
     Active Substance: ATORVASTATIN
  4. OCREVUS [Suspect]
     Active Substance: OCRELIZUMAB
     Route: 042
     Dates: start: 20201116
  5. DEKRISTOL [Concomitant]
     Active Substance: CHOLECALCIFEROL
  6. CONCOR [Concomitant]
     Active Substance: BISOPROLOL FUMARATE
  7. CONCOR PLUS [Concomitant]
     Active Substance: BISOPROLOL FUMARATE\HYDROCHLOROTHIAZIDE
  8. OCREVUS [Suspect]
     Active Substance: OCRELIZUMAB
     Route: 042
     Dates: start: 20191120
  9. FAMPYRA [Concomitant]
     Active Substance: DALFAMPRIDINE
  10. OCREVUS [Suspect]
     Active Substance: OCRELIZUMAB
     Route: 042
     Dates: start: 20181122
  11. TELMISARTAN. [Concomitant]
     Active Substance: TELMISARTAN
  12. ZOPICLON [Concomitant]
     Active Substance: ZOPICLONE
  13. OCREVUS [Suspect]
     Active Substance: OCRELIZUMAB
     Indication: PRIMARY PROGRESSIVE MULTIPLE SCLEROSIS
     Route: 042
     Dates: start: 20180522

REACTIONS (14)
  - Asthenia [Recovered/Resolved]
  - Cystitis noninfective [Recovered/Resolved]
  - Gait disturbance [Not Recovered/Not Resolved]
  - Fatigue [Recovered/Resolved]
  - Cough [Recovered/Resolved]
  - Heart rate increased [Recovered/Resolved]
  - Feeling hot [Recovered/Resolved]
  - Agitation [Recovered/Resolved]
  - Fatigue [Recovered/Resolved]
  - Feeling hot [Recovered/Resolved]
  - Productive cough [Recovered/Resolved]
  - Cognitive disorder [Not Recovered/Not Resolved]
  - Helicobacter infection [Recovered/Resolved]
  - Dyspepsia [Recovered/Resolved]

NARRATIVE: CASE EVENT DATE: 20180522
